FAERS Safety Report 4302373-7 (Version None)
Quarter: 2004Q1

REPORT INFORMATION
  Report Type: 
  Country: None (occurrence: None)
  Receive Date: 20040220
  Receipt Date: 20040202
  Transmission Date: 20041129
  Serious: Yes (Hospitalization)
  Sender: FDA-Public Use
  Company Number: 2003-111292-NL

PATIENT
  Age: 84 Year
  Sex: Female

DRUGS (7)
  1. ORGARAN [Suspect]
     Indication: DISSEMINATED INTRAVASCULAR COAGULATION
     Dosage: 1250 ANTI_XA/2500 ANTI_XA
     Route: 042
     Dates: start: 20030716, end: 20030716
  2. ORGARAN [Suspect]
     Indication: DISSEMINATED INTRAVASCULAR COAGULATION
     Dosage: 1250 ANTI_XA/2500 ANTI_XA
     Route: 042
     Dates: start: 20030717, end: 20030717
  3. GABEXATE MESILATE [Concomitant]
  4. FAMOTIDINE [Concomitant]
  5. IMMUNOGLOBULIN HUMAN NORMAL [Concomitant]
  6. FLOMOXEF SODIUM) [Concomitant]
  7. METHYLPREDNISOLONE SODIUM SUCCINATE [Concomitant]

REACTIONS (4)
  - ANASTOMOTIC HAEMORRHAGE [None]
  - POST PROCEDURAL COMPLICATION [None]
  - RECTAL HAEMORRHAGE [None]
  - SHOCK [None]
